FAERS Safety Report 18061545 (Version 4)
Quarter: 2021Q3

REPORT INFORMATION
  Report Type: Report from Study
  Country: DK (occurrence: DK)
  Receive Date: 20200723
  Receipt Date: 20210714
  Transmission Date: 20211014
  Serious: Yes (Hospitalization, Other)
  Sender: FDA-Public Use
  Company Number: PHHO2018DK010055

PATIENT
  Age: 62 Year
  Sex: Male
  Weight: 99 kg

DRUGS (15)
  1. PANTOPRAZOLE [Concomitant]
     Active Substance: PANTOPRAZOLE
     Indication: GASTRIC ULCER
     Dosage: 40 MG, QD
     Route: 065
     Dates: start: 20161107
  2. CAPMATINIB [Suspect]
     Active Substance: CAPMATINIB
     Indication: HEPATOBILIARY DISEASE
     Dosage: 400 MG, BID
     Route: 048
     Dates: start: 20161027
  3. OXALIPLATIN. [Suspect]
     Active Substance: OXALIPLATIN
     Indication: HEPATOBILIARY DISEASE
     Dosage: UNK
     Route: 065
  4. PARACETAMOL [Concomitant]
     Active Substance: ACETAMINOPHEN
     Indication: HEADACHE
     Dosage: 1000 MG, PRN
     Route: 065
  5. POTASSIUM CHLORIDE. [Concomitant]
     Active Substance: POTASSIUM CHLORIDE
     Indication: PRODUCT USED FOR UNKNOWN INDICATION
     Dosage: UNK
     Route: 065
  6. GAVISCON [Concomitant]
     Active Substance: ALUMINUM HYDROXIDE\MAGNESIUM CARBONATE
     Indication: PROPHYLAXIS
     Dosage: UNK
     Route: 065
     Dates: start: 20170626
  7. ACETYLSALICYLIC ACID [Concomitant]
     Active Substance: ASPIRIN
     Indication: PROPHYLAXIS
     Dosage: 75 MG, QD
     Route: 065
     Dates: start: 20101201
  8. FUROSEMIDE. [Concomitant]
     Active Substance: FUROSEMIDE
     Indication: OEDEMA PERIPHERAL
     Dosage: UNK
     Route: 065
     Dates: start: 20170403
  9. 5 FU [Suspect]
     Active Substance: FLUOROURACIL
     Indication: HEPATOBILIARY DISEASE
     Dosage: UNK
     Route: 065
  10. ACETYLSALICYLIC ACID [Concomitant]
     Active Substance: ASPIRIN
     Indication: ANTICOAGULANT THERAPY
  11. IRINOTECAN [Suspect]
     Active Substance: IRINOTECAN
     Indication: HEPATOBILIARY DISEASE
     Dosage: UNK
     Route: 065
  12. SPIRONOLACTONE. [Concomitant]
     Active Substance: SPIRONOLACTONE
     Indication: OEDEMA PERIPHERAL
     Dosage: UNK
     Route: 065
     Dates: start: 20170424, end: 20180212
  13. KALEROID [Concomitant]
     Active Substance: POTASSIUM CHLORIDE
     Indication: PROPHYLAXIS
     Dosage: UNK
     Route: 065
     Dates: start: 20180212, end: 20180227
  14. SILDENAFIL. [Concomitant]
     Active Substance: SILDENAFIL
     Indication: ERECTILE DYSFUNCTION
     Dosage: 25 MG, QD
     Route: 065
     Dates: start: 20171120
  15. ZITROMAX [Concomitant]
     Active Substance: AZITHROMYCIN
     Indication: INFLUENZA LIKE ILLNESS
     Dosage: UNK
     Route: 065
     Dates: start: 20180329, end: 20180401

REACTIONS (3)
  - Hepatic cirrhosis [Not Recovered/Not Resolved]
  - Ascites [Recovered/Resolved]
  - Hepatic encephalopathy [Recovered/Resolved]

NARRATIVE: CASE EVENT DATE: 20180904
